FAERS Safety Report 4962889-7 (Version None)
Quarter: 2006Q2

REPORT INFORMATION
  Report Type: 
  Country: None (occurrence: None)
  Receive Date: 20060405
  Receipt Date: 20060213
  Transmission Date: 20061013
  Serious: Yes (Death, Hospitalization)
  Sender: FDA-Public Use
  Company Number: NO-BRISTOL-MYERS SQUIBB COMPANY-13289558

PATIENT
  Age: 70 Year
  Sex: Female

DRUGS (12)
  1. METFORMIN HYDROCHLORIDE [Suspect]
     Indication: DIABETES MELLITUS
     Route: 048
  2. COAPROVEL [Suspect]
     Indication: HYPERTENSION
     Dosage: DOSAGE FORM = 300/12.5 MG
     Route: 048
  3. LEVAXIN [Concomitant]
     Indication: HYPOTHYROIDISM
     Route: 048
  4. SELO-ZOK [Concomitant]
     Indication: HYPERTENSION
     Route: 048
  5. DIURAL [Concomitant]
     Indication: DIURETIC EFFECT
     Route: 048
  6. SERETIDE [Concomitant]
     Indication: ASTHMA
     Dosage: DOSAGE FORM = 50/250
  7. LIPITOR [Concomitant]
     Indication: HYPERCHOLESTEROLAEMIA
     Route: 048
  8. PARACET [Concomitant]
     Route: 048
  9. VENTOLIN [Concomitant]
     Indication: ASTHMA
  10. DOXYLIN [Concomitant]
  11. KESTINE [Concomitant]
     Indication: HYPERSENSITIVITY
     Route: 048
  12. COSYLAN [Concomitant]
     Indication: NASOPHARYNGITIS

REACTIONS (2)
  - LACTIC ACIDOSIS [None]
  - RENAL FAILURE ACUTE [None]
